FAERS Safety Report 11633449 (Version 2)
Quarter: 2015Q4

REPORT INFORMATION
  Report Type: Spontaneous
  Country: JP (occurrence: JP)
  Receive Date: 20151015
  Receipt Date: 20151103
  Transmission Date: 20160304
  Serious: Yes (Hospitalization, Other)
  Sender: FDA-Public Use
  Company Number: PHHY2014JP053560

PATIENT
  Age: 48 Year
  Sex: Male

DRUGS (4)
  1. CICLOSPORIN [Suspect]
     Active Substance: CYCLOSPORINE
     Indication: BONE MARROW TRANSPLANT
     Dosage: UNK
     Route: 065
     Dates: start: 20130305
  2. RITUXAN [Suspect]
     Active Substance: RITUXIMAB
     Indication: BONE MARROW TRANSPLANT
     Dosage: UNK
     Route: 065
     Dates: start: 20130705, end: 20130719
  3. RITUXAN [Suspect]
     Active Substance: RITUXIMAB
     Indication: IMMUNOSUPPRESSION
  4. CICLOSPORIN [Suspect]
     Active Substance: CYCLOSPORINE
     Indication: IMMUNOSUPPRESSION

REACTIONS (5)
  - Posterior reversible encephalopathy syndrome [Recovered/Resolved]
  - Disorientation [Recovered/Resolved]
  - Monoparesis [Recovered/Resolved]
  - Altered state of consciousness [Recovered/Resolved]
  - Sepsis [Unknown]

NARRATIVE: CASE EVENT DATE: 20130731
